FAERS Safety Report 17806781 (Version 5)
Quarter: 2022Q1

REPORT INFORMATION
  Report Type: Spontaneous
  Country: US (occurrence: US)
  Receive Date: 20200520
  Receipt Date: 20220124
  Transmission Date: 20220423
  Serious: No
  Sender: FDA-Public Use
  Company Number: US-PFIZER INC-2019390790

PATIENT
  Age: 10 Year
  Sex: Female
  Weight: 40.46 kg

DRUGS (6)
  1. GENOTROPIN [Suspect]
     Active Substance: SOMATROPIN
     Indication: Adrenogenital syndrome
     Dosage: 1.9 MG, 6 DAYS PER WEEK
     Route: 058
  2. GENOTROPIN [Suspect]
     Active Substance: SOMATROPIN
     Indication: Growth hormone deficiency
     Dosage: 2 MG (6 NIGHTS A WEEK)
     Route: 058
     Dates: start: 2019
  3. GENOTROPIN [Suspect]
     Active Substance: SOMATROPIN
     Dosage: 1.8 MG, 3 DAYS A WEEK
  4. GENOTROPIN [Suspect]
     Active Substance: SOMATROPIN
     Dosage: 2.0 MG, 3 DAYS A WEEK
  5. CORTEF [Concomitant]
     Active Substance: HYDROCORTISONE
     Dosage: UNK
  6. FLUDROCORTISONE [Concomitant]
     Active Substance: FLUDROCORTISONE
     Dosage: UNK

REACTIONS (6)
  - Injection site pain [Recovered/Resolved]
  - Device issue [Unknown]
  - Incorrect dose administered by device [Unknown]
  - Device information output issue [Unknown]
  - Product dose omission issue [Unknown]
  - Product prescribing error [Unknown]

NARRATIVE: CASE EVENT DATE: 20200511
